FAERS Safety Report 8114757-X (Version None)
Quarter: 2012Q1

REPORT INFORMATION
  Report Type: 
  Country: None (occurrence: None)
  Receive Date: 20120206
  Receipt Date: 20120130
  Transmission Date: 20120608
  Serious: Yes (Other)
  Sender: FDA-Public Use
  Company Number: US-CELGENEUS-163-21880-12013162

PATIENT
  Sex: Male
  Weight: 72.64 kg

DRUGS (5)
  1. IRON [Concomitant]
     Route: 065
  2. LASIX [Concomitant]
     Route: 065
  3. REVLIMID [Suspect]
     Indication: MULTIPLE MYELOMA
     Dosage: 25 MILLIGRAM
     Route: 048
     Dates: start: 20110909
  4. VYTORIN [Concomitant]
     Route: 065
  5. METFORMIN HCL [Concomitant]
     Route: 065

REACTIONS (2)
  - OCULAR RETROBULBAR HAEMORRHAGE [None]
  - BLOOD GLUCOSE INCREASED [None]
